FAERS Safety Report 25183093 (Version 2)
Quarter: 2025Q2

REPORT INFORMATION
  Report Type: Spontaneous
  Country: GB (occurrence: GB)
  Receive Date: 20250410
  Receipt Date: 20250415
  Transmission Date: 20250717
  Serious: Yes (Other)
  Sender: MYLAN
  Company Number: GB-MYLANLABS-2025M1029871

PATIENT
  Age: 40 Year
  Sex: Male
  Weight: 102.9 kg

DRUGS (44)
  1. CLOZARIL [Suspect]
     Active Substance: CLOZAPINE
     Indication: Schizophrenia
  2. CLOZARIL [Suspect]
     Active Substance: CLOZAPINE
  3. CLOZARIL [Suspect]
     Active Substance: CLOZAPINE
     Route: 048
  4. CLOZARIL [Suspect]
     Active Substance: CLOZAPINE
     Route: 048
  5. CLOZARIL [Suspect]
     Active Substance: CLOZAPINE
  6. CLOZARIL [Suspect]
     Active Substance: CLOZAPINE
  7. CLOZARIL [Suspect]
     Active Substance: CLOZAPINE
     Route: 048
  8. CLOZARIL [Suspect]
     Active Substance: CLOZAPINE
     Route: 048
  9. CLOZARIL [Suspect]
     Active Substance: CLOZAPINE
     Dosage: UNK, BID (STANDARD TITRATION; BD)
     Dates: start: 20250407
  10. CLOZARIL [Suspect]
     Active Substance: CLOZAPINE
     Dosage: UNK, BID (STANDARD TITRATION; BD)
     Route: 048
     Dates: start: 20250407
  11. CLOZARIL [Suspect]
     Active Substance: CLOZAPINE
     Dosage: UNK, BID (STANDARD TITRATION; BD)
     Dates: start: 20250407
  12. CLOZARIL [Suspect]
     Active Substance: CLOZAPINE
     Dosage: UNK, BID (STANDARD TITRATION; BD)
     Route: 048
     Dates: start: 20250407
  13. ZUCLOPENTHIXOL DECANOATE [Concomitant]
     Active Substance: ZUCLOPENTHIXOL DECANOATE
     Indication: Schizophrenia
     Dosage: 600 MILLIGRAM, QW (WEEKLY)
     Dates: start: 20241223, end: 20250324
  14. ZUCLOPENTHIXOL DECANOATE [Concomitant]
     Active Substance: ZUCLOPENTHIXOL DECANOATE
     Dosage: 600 MILLIGRAM, QW (WEEKLY)
     Route: 030
     Dates: start: 20241223, end: 20250324
  15. ZUCLOPENTHIXOL DECANOATE [Concomitant]
     Active Substance: ZUCLOPENTHIXOL DECANOATE
     Dosage: 600 MILLIGRAM, QW (WEEKLY)
     Route: 030
     Dates: start: 20241223, end: 20250324
  16. ZUCLOPENTHIXOL DECANOATE [Concomitant]
     Active Substance: ZUCLOPENTHIXOL DECANOATE
     Dosage: 600 MILLIGRAM, QW (WEEKLY)
     Dates: start: 20241223, end: 20250324
  17. OLANZAPINE [Concomitant]
     Active Substance: OLANZAPINE
     Indication: Agitation
     Dosage: 5 MILLIGRAM, PM (NOCTE, LONG STANDING PRESCRIPTION)
     Dates: end: 20250410
  18. OLANZAPINE [Concomitant]
     Active Substance: OLANZAPINE
     Indication: Schizophrenia
     Dosage: 5 MILLIGRAM, PM (NOCTE, LONG STANDING PRESCRIPTION)
     Dates: end: 20250410
  19. OLANZAPINE [Concomitant]
     Active Substance: OLANZAPINE
     Dosage: 5 MILLIGRAM, PM (NOCTE, LONG STANDING PRESCRIPTION)
     Route: 048
     Dates: end: 20250410
  20. OLANZAPINE [Concomitant]
     Active Substance: OLANZAPINE
     Dosage: 5 MILLIGRAM, PM (NOCTE, LONG STANDING PRESCRIPTION)
     Route: 048
     Dates: end: 20250410
  21. OLANZAPINE [Concomitant]
     Active Substance: OLANZAPINE
  22. OLANZAPINE [Concomitant]
     Active Substance: OLANZAPINE
  23. OLANZAPINE [Concomitant]
     Active Substance: OLANZAPINE
     Route: 048
  24. OLANZAPINE [Concomitant]
     Active Substance: OLANZAPINE
     Route: 048
  25. LORAZEPAM [Concomitant]
     Active Substance: LORAZEPAM
     Indication: Agitation
  26. LORAZEPAM [Concomitant]
     Active Substance: LORAZEPAM
     Route: 048
  27. LORAZEPAM [Concomitant]
     Active Substance: LORAZEPAM
     Route: 048
  28. LORAZEPAM [Concomitant]
     Active Substance: LORAZEPAM
  29. PROMETHAZINE [Concomitant]
     Active Substance: PROMETHAZINE HYDROCHLORIDE
     Indication: Agitation
  30. PROMETHAZINE [Concomitant]
     Active Substance: PROMETHAZINE HYDROCHLORIDE
     Route: 048
  31. PROMETHAZINE [Concomitant]
     Active Substance: PROMETHAZINE HYDROCHLORIDE
     Route: 048
  32. PROMETHAZINE [Concomitant]
     Active Substance: PROMETHAZINE HYDROCHLORIDE
  33. LITHIUM CARBONATE [Concomitant]
     Active Substance: LITHIUM CARBONATE
     Indication: Schizophrenia
     Dosage: 875 MILLIGRAM, PM (NOCTE; LONG STANDING PRESCRIPTION)
  34. LITHIUM CARBONATE [Concomitant]
     Active Substance: LITHIUM CARBONATE
     Dosage: 875 MILLIGRAM, PM (NOCTE; LONG STANDING PRESCRIPTION)
     Route: 048
  35. LITHIUM CARBONATE [Concomitant]
     Active Substance: LITHIUM CARBONATE
     Dosage: 875 MILLIGRAM, PM (NOCTE; LONG STANDING PRESCRIPTION)
     Route: 048
  36. LITHIUM CARBONATE [Concomitant]
     Active Substance: LITHIUM CARBONATE
     Dosage: 875 MILLIGRAM, PM (NOCTE; LONG STANDING PRESCRIPTION)
  37. ZOPICLONE [Concomitant]
     Active Substance: ZOPICLONE
     Indication: Insomnia
     Dosage: 7.5 MILLIGRAM, PM (NOCTE; LONG STANDING PRESCRIPTION)
  38. ZOPICLONE [Concomitant]
     Active Substance: ZOPICLONE
     Dosage: 7.5 MILLIGRAM, PM (NOCTE; LONG STANDING PRESCRIPTION)
     Route: 048
  39. ZOPICLONE [Concomitant]
     Active Substance: ZOPICLONE
     Dosage: 7.5 MILLIGRAM, PM (NOCTE; LONG STANDING PRESCRIPTION)
     Route: 048
  40. ZOPICLONE [Concomitant]
     Active Substance: ZOPICLONE
     Dosage: 7.5 MILLIGRAM, PM (NOCTE; LONG STANDING PRESCRIPTION)
  41. DIAZEPAM [Concomitant]
     Active Substance: DIAZEPAM
     Indication: Agitation
     Dosage: QD (15 MG TOTAL DAILY DOSE; LONG STANDING PRESCRIPTION)
  42. DIAZEPAM [Concomitant]
     Active Substance: DIAZEPAM
     Dosage: QD (15 MG TOTAL DAILY DOSE; LONG STANDING PRESCRIPTION)
     Route: 048
  43. DIAZEPAM [Concomitant]
     Active Substance: DIAZEPAM
     Dosage: QD (15 MG TOTAL DAILY DOSE; LONG STANDING PRESCRIPTION)
     Route: 048
  44. DIAZEPAM [Concomitant]
     Active Substance: DIAZEPAM
     Dosage: QD (15 MG TOTAL DAILY DOSE; LONG STANDING PRESCRIPTION)

REACTIONS (3)
  - Neutropenia [Recovered/Resolved]
  - Eosinophil count decreased [Unknown]
  - Off label use [Unknown]

NARRATIVE: CASE EVENT DATE: 20250404
